FAERS Safety Report 12650750 (Version 1)
Quarter: 2016Q3

REPORT INFORMATION
  Report Type: Spontaneous
  Country: US (occurrence: None)
  Receive Date: 20160812
  Receipt Date: 20160812
  Transmission Date: 20161109
  Serious: Yes (Life-Threatening, Disabling)
  Sender: FDA-Public Use
  Company Number: None

PATIENT
  Age: 69 Year
  Sex: Male
  Weight: 52.16 kg

DRUGS (15)
  1. LEVEITIRACETAM [Concomitant]
  2. CYCLOBENZAPRINC [Concomitant]
  3. FENTANYL. [Concomitant]
     Active Substance: FENTANYL
  4. DEXAMETHASONE. [Concomitant]
     Active Substance: DEXAMETHASONE
  5. FORMOTEROL [Concomitant]
     Active Substance: FORMOTEROL
  6. MAGIC MOUTHWASH [Concomitant]
     Active Substance: DIPHENHYDRAMINE HYDROCHLORIDE\LIDOCAINE HYDROCHLORIDE\NYSTATIN
  7. ISOSOURCE [Concomitant]
  8. DIOCTO [Suspect]
     Active Substance: DOCUSATE SODIUM
     Indication: CONSTIPATION
     Dosage: FEEDING TUBE
     Dates: start: 20160622, end: 20160630
  9. POLYETHYLENE GLYCOL [Concomitant]
     Active Substance: POLYETHYLENE GLYCOLS
  10. SENNA [Concomitant]
     Active Substance: SENNA LEAF\SENNOSIDES\SENNOSIDES A AND B
  11. SIMVASTATIN. [Concomitant]
     Active Substance: SIMVASTATIN
  12. LEVOFLOXACIN. [Concomitant]
     Active Substance: LEVOFLOXACIN
  13. MORPHINE SULFATE. [Concomitant]
     Active Substance: MORPHINE SULFATE
  14. INV-INCB-24360-204-INCB024360 [Concomitant]
  15. BUDESONIDE. [Concomitant]
     Active Substance: BUDESONIDE

REACTIONS (7)
  - Drug ineffective [None]
  - Body temperature increased [None]
  - Gallbladder disorder [None]
  - Burkholderia cepacia complex infection [None]
  - Lung infection [None]
  - Productive cough [None]
  - Product quality issue [None]

NARRATIVE: CASE EVENT DATE: 20160715
